FAERS Safety Report 13298197 (Version 1)
Quarter: 2017Q1

REPORT INFORMATION
  Report Type: Spontaneous
  Country: US (occurrence: US)
  Receive Date: 20170306
  Receipt Date: 20170306
  Transmission Date: 20170428
  Serious: Yes (Other)
  Sender: FDA-Public Use
  Company Number: US-NOVOPROD-533496

PATIENT
  Age: 62 Year
  Sex: Female

DRUGS (3)
  1. NOVOLOG [Suspect]
     Active Substance: INSULIN ASPART
     Indication: TYPE 1 DIABETES MELLITUS
     Dosage: 27 U, TID, WITH MEALS
     Route: 058
     Dates: start: 1999, end: 201702
  2. LANTUS [Concomitant]
     Active Substance: INSULIN GLARGINE
     Indication: TYPE 1 DIABETES MELLITUS
     Dosage: 90 U, QD, AT NIGHT
  3. NOVOLOG [Suspect]
     Active Substance: INSULIN ASPART
     Dosage: 27 U, TID WITH MEALS
     Route: 058
     Dates: start: 201702

REACTIONS (6)
  - Cough [Not Recovered/Not Resolved]
  - Blood triglycerides increased [Recovered/Resolved]
  - Cardiomegaly [Not Recovered/Not Resolved]
  - Blood cholesterol increased [Unknown]
  - Hypertension [Unknown]
  - Expired product administered [Not Recovered/Not Resolved]

NARRATIVE: CASE EVENT DATE: 2015
